FAERS Safety Report 10996968 (Version 6)
Quarter: 2017Q1

REPORT INFORMATION
  Report Type: Report from Study
  Country: US (occurrence: US)
  Receive Date: 20150331
  Receipt Date: 20170111
  Transmission Date: 20170428
  Serious: Yes (Life-Threatening, Other)
  Sender: FDA-Public Use
  Company Number: PHEH2015US000849

PATIENT
  Age: 71 Year
  Sex: Male
  Weight: 79.82 kg

DRUGS (11)
  1. GLEEVEC [Suspect]
     Active Substance: IMATINIB MESYLATE
     Dosage: 400 MG, QOD (EVERY OTHER DAY)
     Route: 065
  2. TRIBENZOR [Concomitant]
     Active Substance: AMLODIPINE BESYLATE\HYDROCHLOROTHIAZIDE\OLMESARTAN MEDOXOMIL
     Indication: HYPERTENSION
     Dosage: 40/5/10.5 OT, QD
     Route: 048
     Dates: start: 20130723
  3. PREDNISONE. [Concomitant]
     Active Substance: PREDNISONE
     Indication: PRODUCT USED FOR UNKNOWN INDICATION
     Route: 065
  4. HYDROXYUREA. [Concomitant]
     Active Substance: HYDROXYUREA
     Indication: PRODUCT USED FOR UNKNOWN INDICATION
     Dosage: UNK
     Route: 065
     Dates: start: 20060625
  5. BOSUTINIB [Concomitant]
     Active Substance: BOSUTINIB
     Indication: PRODUCT USED FOR UNKNOWN INDICATION
     Route: 065
  6. TASIGNA [Suspect]
     Active Substance: NILOTINIB
     Dosage: 300 MG, BID
     Route: 048
     Dates: start: 201405
  7. GLEEVEC [Suspect]
     Active Substance: IMATINIB MESYLATE
     Indication: MYELOPROLIFERATIVE NEOPLASM
     Dosage: 400 MG, QD
     Route: 048
     Dates: start: 20060804
  8. SPRYCEL [Suspect]
     Active Substance: DASATINIB
     Indication: PRODUCT USED FOR UNKNOWN INDICATION
     Dosage: 100 MG, QD
     Route: 065
     Dates: start: 201311, end: 20131203
  9. LIPITOR [Concomitant]
     Active Substance: ATORVASTATIN CALCIUM
     Indication: HYPERLIPIDAEMIA
     Dosage: 10 MG, QD
     Route: 048
     Dates: start: 20100527
  10. TASIGNA [Suspect]
     Active Substance: NILOTINIB
     Indication: CHRONIC MYELOID LEUKAEMIA
     Dosage: 150 MG, BID
     Route: 048
     Dates: start: 20140520
  11. GLEEVEC [Suspect]
     Active Substance: IMATINIB MESYLATE
     Dosage: 400 MG, QOD (EVERY OTHER DAY)
     Route: 065
     Dates: start: 20060824, end: 201310

REACTIONS (25)
  - Hyperglycaemia [Unknown]
  - Polyuria [Unknown]
  - Neutrophil count increased [Unknown]
  - Pleural effusion [Recovering/Resolving]
  - Pruritus [Unknown]
  - Cataract [Unknown]
  - Rash [Recovering/Resolving]
  - Feeling abnormal [Unknown]
  - Blast cell crisis [Unknown]
  - Lung disorder [Unknown]
  - Polydipsia [Unknown]
  - Dry skin [Unknown]
  - Drug intolerance [Unknown]
  - Weight decreased [Unknown]
  - Blood glucose increased [Unknown]
  - Musculoskeletal pain [Unknown]
  - Cough [Recovering/Resolving]
  - Diabetes mellitus [Recovering/Resolving]
  - Folliculitis [Unknown]
  - Decreased appetite [Unknown]
  - Drug eruption [Unknown]
  - Visual impairment [Unknown]
  - Vision blurred [Unknown]
  - White blood cell count increased [Unknown]
  - Dyspnoea [Recovering/Resolving]

NARRATIVE: CASE EVENT DATE: 201406
